FAERS Safety Report 23983365 (Version 8)
Quarter: 2025Q1

REPORT INFORMATION
  Report Type: Report from Study
  Country: IN (occurrence: IN)
  Receive Date: 20240617
  Receipt Date: 20250106
  Transmission Date: 20250408
  Serious: Yes (Other)
  Sender: INCYTE
  Company Number: IN-002147023-NVSC2024IN111792

PATIENT

DRUGS (4)
  1. RUXOLITINIB [Suspect]
     Active Substance: RUXOLITINIB
     Indication: Primary myelofibrosis
     Dosage: 10 MG, BID
     Route: 048
     Dates: start: 20240309
  2. RUXOLITINIB [Suspect]
     Active Substance: RUXOLITINIB
     Indication: Graft versus host disease
     Dosage: 5 MG, BID
     Route: 048
  3. RUXOLITINIB [Suspect]
     Active Substance: RUXOLITINIB
     Indication: Graft versus host disease in gastrointestinal tract
     Dosage: 10 MG, BID
     Route: 048
     Dates: start: 20240311
  4. RUXOLITINIB [Suspect]
     Active Substance: RUXOLITINIB
     Indication: Chronic graft versus host disease in lung

REACTIONS (15)
  - Abdominal distension [Unknown]
  - Abdominal pain [Unknown]
  - Cytomegalovirus viraemia [Recovered/Resolved]
  - Chronic graft versus host disease in lung [Unknown]
  - Cough [Unknown]
  - Discomfort [Unknown]
  - Nephropathy toxic [Recovered/Resolved]
  - Granuloma [Unknown]
  - Haemangioma of liver [Unknown]
  - Thirst [Unknown]
  - Respiratory syncytial virus infection [Recovered/Resolved]
  - Nausea [Unknown]
  - Pain in extremity [Unknown]
  - Dyspnoea exertional [Unknown]
  - Pseudomonas infection [Unknown]
